FAERS Safety Report 16089518 (Version 2)
Quarter: 2019Q3

REPORT INFORMATION
  Report Type: Spontaneous
  Country: US (occurrence: US)
  Receive Date: 20190319
  Receipt Date: 20190827
  Transmission Date: 20191004
  Serious: Yes (Other)
  Sender: FDA-Public Use
  Company Number: US-SA-2019SA069535

PATIENT
  Age: 58 Year
  Sex: Female
  Weight: 74.84 kg

DRUGS (22)
  1. TAXOTERE [Suspect]
     Active Substance: DOCETAXEL
     Dosage: UNK UNK, Q3W
     Route: 042
     Dates: start: 201206, end: 201206
  2. AMLODIPINE [Concomitant]
     Active Substance: AMLODIPINE BESYLATE
  3. PROVENTIL [Concomitant]
     Active Substance: ALBUTEROL
  4. NIACIN. [Concomitant]
     Active Substance: NIACIN
  5. OXYCODONE [Concomitant]
     Active Substance: OXYCODONE
  6. SYNTHROID [Concomitant]
     Active Substance: LEVOTHYROXINE SODIUM
  7. LEVOTHYROXINE. [Concomitant]
     Active Substance: LEVOTHYROXINE
     Dosage: UNK
     Dates: start: 2009
  8. OMEPRAZOLE. [Concomitant]
     Active Substance: OMEPRAZOLE
     Dosage: UNK
     Dates: start: 2010
  9. POTASSIUM [Concomitant]
     Active Substance: POTASSIUM
  10. TAXOTERE [Suspect]
     Active Substance: DOCETAXEL
     Indication: BREAST CANCER FEMALE
     Dosage: UNK UNK, Q3W
     Route: 042
     Dates: start: 20120417, end: 20120417
  11. PROAIR HFA [Concomitant]
     Active Substance: ALBUTEROL SULFATE
     Dosage: UNK
     Dates: start: 2009
  12. LOSARTAN. [Concomitant]
     Active Substance: LOSARTAN
     Dosage: UNK
     Dates: start: 2010
  13. NEOSAR [Concomitant]
     Active Substance: CYCLOPHOSPHAMIDE
     Indication: BREAST CANCER FEMALE
  14. CYTOXAN [Concomitant]
     Active Substance: CYCLOPHOSPHAMIDE
     Indication: BREAST CANCER FEMALE
  15. HYDROXYCHLOROQUINE [Concomitant]
     Active Substance: HYDROXYCHLOROQUINE
     Dosage: UNK
     Dates: start: 2009
  16. SERTRALINA [SERTRALINE] [Concomitant]
  17. ANASTROZOLE. [Concomitant]
     Active Substance: ANASTROZOLE
  18. ASPRIN [Concomitant]
     Active Substance: ASPIRIN
  19. LORAZEPAM. [Concomitant]
     Active Substance: LORAZEPAM
  20. ALLOPURINOL. [Concomitant]
     Active Substance: ALLOPURINOL
  21. LISINOPRIL. [Concomitant]
     Active Substance: LISINOPRIL
  22. PRILOSEC [Concomitant]
     Active Substance: OMEPRAZOLE MAGNESIUM

REACTIONS (2)
  - Alopecia [Recovering/Resolving]
  - Psychological trauma [Unknown]

NARRATIVE: CASE EVENT DATE: 201204
